FAERS Safety Report 5122269-0 (Version None)
Quarter: 2006Q4

REPORT INFORMATION
  Report Type: 
  Country: None (occurrence: None)
  Receive Date: 20061003
  Receipt Date: 20060922
  Transmission Date: 20070319
  Serious: Yes (Hospitalization)
  Sender: FDA-Public Use
  Company Number: 229619

PATIENT
  Age: 83 Year
  Sex: Female

DRUGS (18)
  1. RITUXAN [Suspect]
     Indication: LYMPHOMA
     Dosage: 375 MG/M2, INTRAVENOUS
     Route: 042
     Dates: start: 20060731, end: 20060731
  2. CYTOXAN [Suspect]
     Indication: LYMPHOMA
     Dosage: 500 MG/M2, INTRAVENOUS
     Route: 042
     Dates: start: 20060731, end: 20060731
  3. NOVANTRONE [Suspect]
     Indication: LYMPHOMA
     Dosage: 10 MG/M2, INTRAVENOUS
     Route: 042
     Dates: start: 20060731, end: 20060731
  4. ONCOVIN [Suspect]
     Indication: LYMPHOMA
     Dosage: 1 MG/M2, INTRAVENOUS
     Route: 042
     Dates: start: 20060731, end: 20060731
  5. PREDNISONE TAB [Suspect]
     Indication: LYMPHOMA
     Dosage: 80, ORAL
     Route: 048
     Dates: start: 20060731, end: 20060804
  6. PROCRIT [Concomitant]
  7. DIFLUCAN [Concomitant]
  8. ATROVENT [Concomitant]
  9. PREVACID [Concomitant]
  10. XOPENEX [Concomitant]
  11. MEGACE [Concomitant]
  12. REGLAN [Concomitant]
  13. TOPROL-XL [Concomitant]
  14. K-DUR 10 [Concomitant]
  15. MORPHINE SULFATE [Concomitant]
  16. TYLENOL (CAPLET) [Concomitant]
  17. PHENERGAN (PROMETHAZINE HYDROCHLORIDE) [Concomitant]
  18. RBC TRANSFUSION (BLOOD CELLS, RED) [Concomitant]

REACTIONS (33)
  - ABDOMINAL PAIN [None]
  - ABSCESS [None]
  - ANOREXIA [None]
  - ASPARTATE AMINOTRANSFERASE INCREASED [None]
  - BLOOD ALBUMIN DECREASED [None]
  - BLOOD BICARBONATE DECREASED [None]
  - BLOOD CALCIUM DECREASED [None]
  - BLOOD GASES ABNORMAL [None]
  - BLOOD GLUCOSE INCREASED [None]
  - BLOOD LACTATE DEHYDROGENASE INCREASED [None]
  - BLOOD PH INCREASED [None]
  - BLOOD POTASSIUM DECREASED [None]
  - BLOOD SODIUM DECREASED [None]
  - BRAIN NATRIURETIC PEPTIDE INCREASED [None]
  - CARDIAC FAILURE CONGESTIVE [None]
  - COLITIS [None]
  - DEEP VEIN THROMBOSIS [None]
  - DYSPNOEA [None]
  - EJECTION FRACTION DECREASED [None]
  - FLUID OVERLOAD [None]
  - HAEMATOCRIT INCREASED [None]
  - HAEMOGLOBIN DECREASED [None]
  - HYPOXIA [None]
  - INFECTION [None]
  - LARGE INTESTINE PERFORATION [None]
  - PCO2 DECREASED [None]
  - PLEURAL EFFUSION [None]
  - PO2 DECREASED [None]
  - PULMONARY HYPERTENSION [None]
  - PULMONARY VALVE INCOMPETENCE [None]
  - RESPIRATORY ALKALOSIS [None]
  - TRICUSPID VALVE INCOMPETENCE [None]
  - VENTRICULAR HYPOKINESIA [None]
